FAERS Safety Report 9169310 (Version 2)
Quarter: 2013Q4

REPORT INFORMATION
  Report Type: Spontaneous
  Country: FR (occurrence: FR)
  Receive Date: 20130318
  Receipt Date: 20131216
  Transmission Date: 20140711
  Serious: Yes (Hospitalization)
  Sender: FDA-Public Use
  Company Number: FR-ROCHE-709674

PATIENT
  Age: 81 Year
  Sex: Female

DRUGS (10)
  1. ROCEPHINE [Suspect]
     Indication: BACTERIAL SEPSIS
     Route: 042
     Dates: start: 20100318, end: 20100322
  2. METHOTREXATE [Suspect]
     Indication: RHEUMATOID ARTHRITIS
     Dosage: ON THURSDAY
     Route: 048
  3. METHOTREXATE [Suspect]
     Dosage: MISTAKENLY ADMINISTERED FOR 48 HOURS (04 TABLETS ON THURSDAY AND 04 ON FRIDAY)
     Route: 048
     Dates: start: 20100318, end: 20100319
  4. ROVAMYCINE [Suspect]
     Indication: BACTERIAL SEPSIS
     Route: 042
     Dates: start: 20100319, end: 20100322
  5. REMINYL [Concomitant]
  6. LAROXYL [Concomitant]
     Dosage: STRENGTH:40 MG/ML
     Route: 048
  7. IXPRIM [Concomitant]
     Dosage: STRENGTH: 37.5 MG/325 MG (PARACETAMOL/TRAMADOL)
     Route: 065
  8. CORTANCYL [Concomitant]
  9. LYSANXIA [Concomitant]
  10. SPECIAFOLDINE [Concomitant]

REACTIONS (1)
  - Pancytopenia [Recovering/Resolving]
